FAERS Safety Report 6702726-3 (Version None)
Quarter: 2010Q2

REPORT INFORMATION
  Report Type: 
  Country: None (occurrence: None)
  Receive Date: 20100429
  Receipt Date: 20100419
  Transmission Date: 20101027
  Serious: Yes (Other)
  Sender: FDA-Public Use
  Company Number: CH-CEPHALON-2010002296

PATIENT
  Age: 18 Year
  Sex: Male

DRUGS (4)
  1. MODASOMIL [Suspect]
     Indication: NARCOLEPSY
     Route: 048
  2. MODASOMIL [Suspect]
     Indication: CATAPLEXY
     Route: 048
  3. SODIUM OXYBATE [Suspect]
  4. ALCOHOL [Suspect]

REACTIONS (3)
  - DEREALISATION [None]
  - LOSS OF CONSCIOUSNESS [None]
  - NEGATIVE THOUGHTS [None]
